FAERS Safety Report 9841667 (Version 1)
Quarter: 2013Q4

REPORT INFORMATION
  Report Type: Spontaneous
  Country: US (occurrence: None)
  Receive Date: 20131219
  Receipt Date: 20131219
  Transmission Date: 20140711
  Serious: Yes (Death, Disabling)
  Sender: FDA-Public Use
  Company Number: 163-20785-12113676

PATIENT
  Age: 74 Year
  Sex: Male

DRUGS (17)
  1. THALOMID [Suspect]
     Indication: PLASMA CELL MYELOMA
     Dosage: 1 IN 1 D
     Route: 048
     Dates: start: 20110315, end: 20120920
  2. VELCADE (BORTEZOMIB) (UNKNOWN) [Suspect]
     Indication: PLASMA CELL MYELOMA
     Dates: start: 201103, end: 201209
  3. DECADRON [Concomitant]
  4. STEROIDS [Concomitant]
  5. FLOMAX [Concomitant]
  6. AMLODIPINE [Concomitant]
  7. LISINOPRIL [Concomitant]
  8. NADOLOL [Concomitant]
  9. TRICOR [Concomitant]
  10. COUMADIN [Concomitant]
  11. CELEXA [Concomitant]
  12. DURAGESIC [Concomitant]
  13. TRAZADONE [Concomitant]
  14. CALCIUM [Concomitant]
  15. VITAMIN D [Concomitant]
  16. COLACE [Concomitant]
  17. FINASTERIDE [Concomitant]

REACTIONS (2)
  - Plasma cell myeloma [None]
  - Neuropathy peripheral [None]
